FAERS Safety Report 7513275-7 (Version None)
Quarter: 2011Q2

REPORT INFORMATION
  Report Type: 
  Country: None (occurrence: None)
  Receive Date: 20110531
  Receipt Date: 20110524
  Transmission Date: 20111010
  Serious: Yes (Hospitalization)
  Sender: FDA-Public Use
  Company Number: US-SANOFI-AVENTIS-2011SA033353

PATIENT
  Age: 74 Year
  Sex: Female

DRUGS (9)
  1. COLACE [Concomitant]
  2. COREG [Concomitant]
  3. ASPIRIN [Concomitant]
  4. PEPCID [Concomitant]
  5. DILTIAZEM [Concomitant]
  6. SYNTHROID [Concomitant]
  7. OXYGEN [Concomitant]
  8. LASIX [Suspect]
     Route: 065
     Dates: start: 20110401, end: 20110427
  9. ZOCOR [Concomitant]

REACTIONS (4)
  - PNEUMONIA [None]
  - RASH PRURITIC [None]
  - EOSINOPHILIA [None]
  - DEHYDRATION [None]
